FAERS Safety Report 5805427-9 (Version None)
Quarter: 2008Q3

REPORT INFORMATION
  Report Type: 
  Country: None (occurrence: None)
  Receive Date: 20080710
  Receipt Date: 20080630
  Transmission Date: 20090109
  Serious: Yes (Other)
  Sender: FDA-Public Use
  Company Number: US-JNJFOC-20080700035

PATIENT
  Sex: Female
  Weight: 52.16 kg

DRUGS (4)
  1. FENTANYL TRANSDERMAL SYSTEM [Suspect]
     Indication: BACK PAIN
     Route: 062
  2. HYDROCODONE [Concomitant]
     Indication: PAIN
     Route: 048
  3. METHOCARBAMOL [Concomitant]
     Indication: PAIN
     Route: 048
  4. CYMBALTA [Concomitant]
     Route: 048

REACTIONS (1)
  - CONVULSION [None]
